FAERS Safety Report 8927461 (Version 1)
Quarter: 2012Q4

REPORT INFORMATION
  Report Type: 
  Country: IT (occurrence: IT)
  Receive Date: 20121127
  Receipt Date: 20121127
  Transmission Date: 20130627
  Serious: Yes (Hospitalization)
  Sender: FDA-Public Use
  Company Number: IT-WATSON-2012-19967

PATIENT
  Age: 77 Year
  Sex: Female

DRUGS (5)
  1. GLIMEPIRIDE [Suspect]
     Indication: TYPE 2 DIABETES MELLITUS
     Dosage: 2 mg, daily
     Route: 048
     Dates: start: 20120929, end: 20120930
  2. TORVAST [Concomitant]
     Indication: HYPERCHOLESTEROLAEMIA
     Dosage: 10 mg, unknown
     Route: 065
  3. CARDIRENE [Concomitant]
     Indication: THROMBOSIS PROPHYLAXIS
     Dosage: 160 mg, unknown
     Route: 065
  4. LOBIVON [Concomitant]
     Indication: HYPERTENSION
     Dosage: 5 mg, unknown
     Route: 065
  5. LASITONE [Concomitant]
     Indication: HYPERTENSION
     Dosage: UNK, unknown

REACTIONS (2)
  - Presyncope [Recovering/Resolving]
  - Hypoglycaemia [Recovering/Resolving]
